FAERS Safety Report 4340350-0 (Version None)
Quarter: 2004Q2

REPORT INFORMATION
  Report Type: 
  Country: None (occurrence: None)
  Receive Date: 20040401
  Receipt Date: 20040323
  Transmission Date: 20050107
  Serious: Yes (Other)
  Sender: FDA-Public Use
  Company Number: 2004-01202

PATIENT
  Age: 71 Year
  Sex: Male

DRUGS (3)
  1. BCG THERAPEUTICS, MFR UNK, LOT NOT REP, D5 [Suspect]
     Indication: BLADDER CANCER
     Dosage: (80.0 MG), I.VES., BLADDER
     Route: 043
  2. BUCILLAMINE [Concomitant]
  3. PREDNISOLONE [Concomitant]

REACTIONS (8)
  - EOSINOPHILIC PNEUMONIA [None]
  - HYPERSENSITIVITY [None]
  - HYPOXIA [None]
  - LUNG INFILTRATION [None]
  - LYMPHOCYTE PERCENTAGE DECREASED [None]
  - LYMPHOCYTE STIMULATION TEST POSITIVE [None]
  - MONOCYTE PERCENTAGE INCREASED [None]
  - NEUTROPHIL PERCENTAGE DECREASED [None]
